FAERS Safety Report 21036425 (Version 2)
Quarter: 2022Q3

REPORT INFORMATION
  Report Type: Spontaneous
  Country: US (occurrence: US)
  Receive Date: 20220702
  Receipt Date: 20220901
  Transmission Date: 20221026
  Serious: No
  Sender: FDA-Public Use
  Company Number: US-BRISTOL-MYERS SQUIBB COMPANY-2022-066727

PATIENT
  Age: 86 Year
  Sex: Male

DRUGS (7)
  1. REVLIMID [Suspect]
     Active Substance: LENALIDOMIDE
     Indication: Plasma cell myeloma
     Dosage: FREQ: 21 DAYS ON 7 DAYS OFF
     Route: 048
     Dates: start: 20220517, end: 20220615
  2. LISINOPRIL [Concomitant]
     Active Substance: LISINOPRIL
     Indication: Product used for unknown indication
     Route: 065
  3. GARLIC [Concomitant]
     Active Substance: GARLIC
     Indication: Product used for unknown indication
     Route: 065
  4. LYRICA [Concomitant]
     Active Substance: PREGABALIN
     Indication: Product used for unknown indication
     Route: 065
  5. VITAMINS [Concomitant]
     Active Substance: VITAMINS
     Indication: Product used for unknown indication
     Route: 065
  6. VIROPTIC [Concomitant]
     Active Substance: TRIFLURIDINE
     Indication: Product used for unknown indication
     Dosage: 1% OPTH SOLUTION
     Route: 065
  7. VITAMIN B12 [Concomitant]
     Active Substance: CYANOCOBALAMIN
     Indication: Product used for unknown indication
     Route: 065

REACTIONS (2)
  - Sadism [Recovering/Resolving]
  - Crying [Recovering/Resolving]

NARRATIVE: CASE EVENT DATE: 20220615
